FAERS Safety Report 9624599 (Version 1)
Quarter: 2013Q4

REPORT INFORMATION
  Report Type: Spontaneous
  Country: CZ (occurrence: CZ)
  Receive Date: 20131015
  Receipt Date: 20131015
  Transmission Date: 20140711
  Serious: Yes (Hospitalization)
  Sender: FDA-Public Use
  Company Number: CZ-PFIZER INC-2013290001

PATIENT
  Age: 45 Year
  Sex: Female

DRUGS (6)
  1. DEXAMETHASONE SODIUM PHOSPHATE [Suspect]
     Dosage: 8 MG, DAILY
     Route: 042
     Dates: start: 20111017
  2. CYCLOPHOSPHAMID W/DOXORUBICIN [Concomitant]
     Dosage: UNK
     Route: 042
     Dates: start: 20111017
  3. ONDASETRON [Concomitant]
     Dosage: UNK
     Route: 042
     Dates: start: 20111017
  4. APREPITANT [Concomitant]
     Dosage: UNK
     Route: 048
     Dates: start: 20111017
  5. RANITIDINE [Concomitant]
     Dosage: 50 MG, UNK
     Route: 042
     Dates: start: 20111017
  6. BISULEPIN [Concomitant]
     Dosage: 2 MG, UNK
     Route: 042
     Dates: start: 20111017

REACTIONS (2)
  - Bipolar disorder [Recovered/Resolved]
  - Drug abuse [Recovered/Resolved]
